FAERS Safety Report 9682535 (Version 1)
Quarter: 2013Q4

REPORT INFORMATION
  Report Type: Spontaneous
  Country: DK (occurrence: DK)
  Receive Date: 20131112
  Receipt Date: 20131112
  Transmission Date: 20140711
  Serious: Yes (Other)
  Sender: FDA-Public Use
  Company Number: DK-ROCHE-1299080

PATIENT
  Sex: Female

DRUGS (11)
  1. HERCEPTIN [Suspect]
     Indication: BREAST CANCER
     Route: 065
  2. XELODA [Suspect]
     Indication: BREAST CANCER
     Route: 065
  3. FEMAR [Suspect]
     Indication: BREAST CANCER
     Route: 065
  4. TAMOXIFEN [Suspect]
     Indication: BREAST CANCER
     Route: 065
  5. TAXOTERE [Suspect]
     Indication: BREAST CANCER
     Route: 065
  6. ZOMETA [Suspect]
     Indication: BREAST CANCER
     Route: 065
  7. VINORELBINE [Suspect]
     Indication: BREAST CANCER
     Route: 065
  8. LAPATINIB [Suspect]
     Indication: BREAST CANCER
     Route: 065
  9. TAXOL [Suspect]
     Indication: BREAST CANCER
     Route: 065
  10. ERIBULIN [Suspect]
     Indication: BREAST CANCER
     Route: 065
  11. GEMZAR [Suspect]
     Indication: BREAST CANCER
     Route: 065

REACTIONS (6)
  - Metastases to bone [Unknown]
  - Pleural effusion [Unknown]
  - Lung infiltration [Unknown]
  - Disease progression [Not Recovered/Not Resolved]
  - Metastases to liver [Not Recovered/Not Resolved]
  - Nervous system disorder [Unknown]
